FAERS Safety Report 9005363 (Version 1)
Quarter: 2013Q1

REPORT INFORMATION
  Report Type: Spontaneous
  Country: AU (occurrence: AU)
  Receive Date: 20130108
  Receipt Date: 20130108
  Transmission Date: 20140127
  Serious: Yes (Hospitalization, Other)
  Sender: FDA-Public Use
  Company Number: AU-B.I. PHARMACEUTICALS,INC./RIDGEFIELD-2013-AU-00005AU

PATIENT
  Age: 88 Year
  Sex: Female

DRUGS (17)
  1. PRADAXA [Suspect]
     Indication: ATRIAL FIBRILLATION
     Dosage: 220 MG
     Dates: start: 201109
  2. PRADAXA [Suspect]
     Dosage: 150 MG
     Dates: start: 201212
  3. NORSPAN [Concomitant]
     Dosage: 0.7143 MG
  4. PRANTAL [Concomitant]
     Dosage: 20 MG/1G
  5. NORSPAN [Concomitant]
     Dosage: 2.8571 MG
  6. ENDONE [Concomitant]
     Dosage: 20 MG
  7. IMDUR [Concomitant]
     Dosage: 120 MG
  8. CARVEDILOL [Concomitant]
     Dosage: 50 MG
  9. LASIX [Concomitant]
     Dosage: 120 MG
  10. CARDIZEM [Concomitant]
     Dosage: 180 MG
  11. PANAMAX [Concomitant]
     Dosage: 4000 MG
  12. VITAMIN D3 [Concomitant]
     Dosage: 3571.4286 U
  13. LIPITOR [Concomitant]
     Dosage: 10 MG
  14. NITROLINGUAL [Concomitant]
     Route: 060
  15. SENOKOT [Concomitant]
  16. PANAFCORT [Concomitant]
     Dosage: 50 MG
  17. PANAFCORT [Concomitant]
     Dosage: 25 MEQ

REACTIONS (5)
  - Renal failure acute [Recovered/Resolved]
  - Hyperkalaemia [Recovered/Resolved]
  - Nausea [Unknown]
  - Vaginal haemorrhage [Unknown]
  - Urinary tract infection [Unknown]
